FAERS Safety Report 16646861 (Version 1)
Quarter: 2019Q3

REPORT INFORMATION
  Report Type: Spontaneous
  Country: US (occurrence: US)
  Receive Date: 20190615
  Receipt Date: 20190615
  Transmission Date: 20191004
  Serious: Yes (Hospitalization)
  Sender: FDA-Public Use
  Company Number: None

PATIENT
  Age: 68 Year
  Sex: Female
  Weight: 70.8 kg

DRUGS (2)
  1. BEVACIZUMAB (RHUMAB VEGF) [Suspect]
     Active Substance: BEVACIZUMAB
     Dates: end: 20190507
  2. DOXIL [Suspect]
     Active Substance: DOXORUBICIN HYDROCHLORIDE
     Dates: end: 20190507

REACTIONS (8)
  - Faecal vomiting [None]
  - Ascites [None]
  - Peritoneal disorder [None]
  - Abdominal pain [None]
  - Tachycardia [None]
  - Dyskinesia [None]
  - Nausea [None]
  - Intestinal dilatation [None]

NARRATIVE: CASE EVENT DATE: 20190531
